FAERS Safety Report 9831580 (Version 1)
Quarter: 2014Q1

REPORT INFORMATION
  Report Type: Spontaneous
  Country: IT (occurrence: IT)
  Receive Date: 20140121
  Receipt Date: 20140121
  Transmission Date: 20141002
  Serious: Yes (Other)
  Sender: FDA-Public Use
  Company Number: IT-JNJFOC-20140106134

PATIENT
  Age: 6 Year
  Sex: Male

DRUGS (1)
  1. VERMOX [Suspect]
     Indication: ENTEROBIASIS
     Route: 048
     Dates: start: 20131211, end: 20131213

REACTIONS (1)
  - Testicular oedema [Recovering/Resolving]
